FAERS Safety Report 12208167 (Version 1)
Quarter: 2016Q1

REPORT INFORMATION
  Report Type: Spontaneous
  Country: US (occurrence: US)
  Receive Date: 20160324
  Receipt Date: 20160324
  Transmission Date: 20160526
  Serious: Yes (Other)
  Sender: FDA-Public Use
  Company Number: US-JNJFOC-20160315813

PATIENT
  Age: 43 Year
  Sex: Female
  Weight: 83.92 kg

DRUGS (1)
  1. REMICADE [Suspect]
     Active Substance: INFLIXIMAB
     Indication: CROHN^S DISEASE
     Route: 042
     Dates: start: 2006, end: 2016

REACTIONS (4)
  - Renal failure [Unknown]
  - Hypertension [Recovering/Resolving]
  - Nephrolithiasis [Unknown]
  - Demyelination [Unknown]

NARRATIVE: CASE EVENT DATE: 201511
